FAERS Safety Report 6574307-6 (Version None)
Quarter: 2010Q1

REPORT INFORMATION
  Report Type: 
  Country: None (occurrence: None)
  Receive Date: 20100201
  Receipt Date: 20100115
  Transmission Date: 20100710
  Serious: Yes (Death)
  Sender: FDA-Public Use
  Company Number: 2010000228

PATIENT
  Age: 58 Year
  Sex: Female

DRUGS (7)
  1. ERLOTINIB HYDROCHLORIDE [Suspect]
     Dosage: (100 MG) ,ORAL
     Route: 048
     Dates: start: 20091120
  2. VINFLUNINE [Suspect]
     Dosage: ORAL
     Route: 048
     Dates: start: 20091113
  3. PROPAFENONE HCL [Concomitant]
  4. ENALAPRIL MALEATE [Concomitant]
  5. ACENOCOUMAROL (AC ENOCOUMAROL) [Concomitant]
  6. METOPROLOL TARTRATE [Concomitant]
  7. DICLOFENAC SODIUM [Concomitant]

REACTIONS (6)
  - ASTHENIA [None]
  - DEHYDRATION [None]
  - DIZZINESS [None]
  - DYSPNOEA [None]
  - FATIGUE [None]
  - MALAISE [None]
